FAERS Safety Report 6970343-6 (Version None)
Quarter: 2010Q3

REPORT INFORMATION
  Report Type: 
  Country: None (occurrence: None)
  Receive Date: 20100908
  Receipt Date: 20100827
  Transmission Date: 20110219
  Serious: Yes (Hospitalization)
  Sender: FDA-Public Use
  Company Number: AU-BAYER-201037436GPV

PATIENT
  Age: 56 Year
  Sex: Male

DRUGS (13)
  1. SORAFENIB [Suspect]
     Indication: HEPATIC NEOPLASM MALIGNANT
     Route: 048
     Dates: start: 20100628
  2. AMGEN 386 [Suspect]
     Indication: HEPATIC NEOPLASM MALIGNANT
     Route: 042
     Dates: start: 20100628
  3. ALBUTEROL SULFATE AUTOHALER [Concomitant]
     Route: 048
     Dates: start: 19900101
  4. OXYCODONE HCL [Concomitant]
     Route: 048
     Dates: start: 20100519
  5. OXYCODONE HYDROCHOLORIDE [Concomitant]
     Route: 048
     Dates: start: 20100519
  6. THIAMINE HCL [Concomitant]
     Route: 048
     Dates: start: 20080201
  7. CENTRUM [Concomitant]
     Route: 048
     Dates: start: 20001101
  8. FUROSEMIDE [Concomitant]
     Route: 048
     Dates: start: 20080201
  9. SPIRONOLACTONE [Concomitant]
     Route: 048
     Dates: start: 20080201
  10. ESOMEPRAZOLE MAGNESIUM [Concomitant]
     Route: 048
     Dates: start: 20000101
  11. LACTULOSE [Concomitant]
     Route: 048
     Dates: start: 20080201
  12. METOCLOPRAMIDE [Concomitant]
     Route: 048
     Dates: start: 20100519
  13. QUETIAPINE [Concomitant]
     Route: 048
     Dates: start: 20000101

REACTIONS (7)
  - CONFUSIONAL STATE [None]
  - DECREASED APPETITE [None]
  - FATIGUE [None]
  - HEPATIC FAILURE [None]
  - HYPERBILIRUBINAEMIA [None]
  - LETHARGY [None]
  - NAUSEA [None]
